FAERS Safety Report 17069049 (Version 3)
Quarter: 2022Q3

REPORT INFORMATION
  Report Type: Spontaneous
  Country: US (occurrence: None)
  Receive Date: 20191124
  Receipt Date: 20220804
  Transmission Date: 20221027
  Serious: Yes (Death, Disabling, Other)
  Sender: FDA-Public Use
  Company Number: 2019SF66401

PATIENT
  Age: 658 Month
  Sex: Male

DRUGS (11)
  1. PRILOSEC [Suspect]
     Active Substance: OMEPRAZOLE MAGNESIUM
     Indication: Dyspepsia
     Route: 048
     Dates: start: 2007, end: 2018
  2. PRILOSEC [Suspect]
     Active Substance: OMEPRAZOLE MAGNESIUM
     Indication: Dyspepsia
     Route: 048
     Dates: start: 2006
  3. PRILOSEC OTC [Suspect]
     Active Substance: OMEPRAZOLE MAGNESIUM
     Route: 048
     Dates: start: 2007, end: 2018
  4. VITAMINS [Concomitant]
     Active Substance: VITAMINS
  5. TESTOSTERONE [Concomitant]
     Active Substance: TESTOSTERONE
     Indication: Sexual dysfunction
  6. VITAMIN D3 [Concomitant]
     Active Substance: CHOLECALCIFEROL
  7. ZINC [Concomitant]
     Active Substance: ZINC
     Indication: Blood cholesterol abnormal
  8. NIACIN [Concomitant]
     Active Substance: NIACIN
     Indication: Blood cholesterol abnormal
  9. CHONDROITIN [Concomitant]
     Active Substance: CHONDROITIN
     Indication: Arthralgia
  10. ROLAIDS [Concomitant]
     Active Substance: CALCIUM CARBONATE\MAGNESIUM HYDROXIDE
  11. TUMS [Concomitant]
     Active Substance: CALCIUM CARBONATE

REACTIONS (3)
  - Oesophageal carcinoma [Fatal]
  - Bone cancer [Fatal]
  - Dyspepsia [Unknown]

NARRATIVE: CASE EVENT DATE: 20150701
